FAERS Safety Report 9493344 (Version 3)
Quarter: 2013Q4

REPORT INFORMATION
  Report Type: Spontaneous
  Country: US (occurrence: US)
  Receive Date: 20130902
  Receipt Date: 20131028
  Transmission Date: 20140711
  Serious: Yes (Other)
  Sender: FDA-Public Use
  Company Number: PHEH2013US015787

PATIENT
  Sex: Female
  Weight: 68 kg

DRUGS (2)
  1. AFINITOR [Suspect]
     Indication: BREAST CANCER
     Dosage: 10 MG, QD
     Route: 048
     Dates: start: 20130628, end: 20130719
  2. AROMASIN [Concomitant]

REACTIONS (3)
  - Gallbladder non-functioning [Unknown]
  - Nausea [Recovered/Resolved]
  - Vomiting [Recovered/Resolved]
